FAERS Safety Report 18418217 (Version 1)
Quarter: 2020Q4

REPORT INFORMATION
  Report Type: Spontaneous
  Country: IT (occurrence: IT)
  Receive Date: 20201023
  Receipt Date: 20201023
  Transmission Date: 20210114
  Serious: Yes (Other)
  Sender: FDA-Public Use
  Company Number: IT-SUN PHARMACEUTICAL INDUSTRIES LTD-2020RR-258381

PATIENT
  Age: 63 Year
  Sex: Female

DRUGS (4)
  1. PREDNISON [Suspect]
     Active Substance: PREDNISONE
     Indication: COVID-19
     Dosage: 25 MILLIGRAM, DAILY
     Route: 048
  2. AZITHROMYCIN ANHYDROUS. [Suspect]
     Active Substance: AZITHROMYCIN ANHYDROUS
     Indication: COVID-19
     Dosage: 500 MILLIGRAM, DAILY
     Route: 048
  3. PEA. [Suspect]
     Active Substance: PEA
     Indication: COVID-19
     Dosage: 1200 MILLIGRAM, DAILY
     Route: 048
  4. HYDROXYCHLOROQUINE [Suspect]
     Active Substance: HYDROXYCHLOROQUINE
     Indication: COVID-19
     Dosage: 200 MILLIGRAM, DAILY
     Route: 048

REACTIONS (1)
  - Off label use [Unknown]
